FAERS Safety Report 25718358 (Version 1)
Quarter: 2025Q3

REPORT INFORMATION
  Report Type: Spontaneous
  Country: US (occurrence: US)
  Receive Date: 20250823
  Receipt Date: 20250823
  Transmission Date: 20251020
  Serious: Yes (Other)
  Sender: SANOFI AVENTIS
  Company Number: US-SA-2025SA249340

PATIENT
  Sex: Female
  Weight: 93.18 kg

DRUGS (2)
  1. DUPIXENT [Suspect]
     Active Substance: DUPILUMAB
     Indication: Dermatitis atopic
     Dosage: 300 MG, QOW
     Route: 058
  2. ORENCIA [Concomitant]
     Active Substance: ABATACEPT

REACTIONS (2)
  - Rheumatoid arthritis [Unknown]
  - Pain [Unknown]
